FAERS Safety Report 5925480-1 (Version None)
Quarter: 2008Q4

REPORT INFORMATION
  Report Type: 
  Country: None (occurrence: None)
  Receive Date: 20081021
  Receipt Date: 20081013
  Transmission Date: 20090506
  Serious: Yes (Other)
  Sender: FDA-Public Use
  Company Number: PHHY2008BR24604

PATIENT
  Age: 69 Year
  Sex: Female

DRUGS (1)
  1. EXELON [Suspect]
     Dosage: 9MG/5CM2
     Route: 062
     Dates: start: 20080701

REACTIONS (4)
  - APPLICATION SITE HYPERSENSITIVITY [None]
  - EYE OEDEMA [None]
  - FACE OEDEMA [None]
  - HYPERSENSITIVITY [None]
